FAERS Safety Report 11446973 (Version 1)
Quarter: 2015Q3

REPORT INFORMATION
  Report Type: Report from Study
  Country: CN (occurrence: CN)
  Receive Date: 20150902
  Receipt Date: 20150902
  Transmission Date: 20151125
  Serious: Yes (Hospitalization)
  Sender: FDA-Public Use
  Company Number: CN-OTSUKA-2015_008325

PATIENT
  Age: 60 Year
  Sex: Male

DRUGS (8)
  1. ATORVASTATIN [Concomitant]
     Active Substance: ATORVASTATIN
     Indication: HYPERCHOLESTEROLAEMIA
     Dosage: UNK
     Route: 065
     Dates: start: 20141030, end: 20150627
  2. PROBUCOL [Suspect]
     Active Substance: PROBUCOL
     Dosage: 250 MG/ TABLET
     Route: 048
     Dates: start: 20150707
  3. BLINDED *PLACEBO [Suspect]
     Active Substance: UNSPECIFIED INGREDIENT
     Indication: HYPERCHOLESTEROLAEMIA
     Dosage: UNK
     Route: 048
     Dates: start: 20141030, end: 20150626
  4. BLINDED *PLACEBO [Suspect]
     Active Substance: UNSPECIFIED INGREDIENT
     Dosage: UNK MG, UNK
     Route: 048
     Dates: start: 20150707
  5. BLINDED CILOSTAZOL [Suspect]
     Active Substance: CILOSTAZOL
     Dosage: UNK MG, UNK
     Route: 048
     Dates: start: 20150707
  6. BLINDED CILOSTAZOL [Suspect]
     Active Substance: CILOSTAZOL
     Indication: HYPERCHOLESTEROLAEMIA
     Dosage: UNK
     Route: 048
     Dates: start: 20141030, end: 20150626
  7. PROBUCOL [Suspect]
     Active Substance: PROBUCOL
     Indication: HYPERCHOLESTEROLAEMIA
     Dosage: 250 MG/ TABLET
     Route: 048
     Dates: start: 20141030, end: 20150626
  8. ATORVASTATIN [Concomitant]
     Active Substance: ATORVASTATIN
     Dosage: UNK
     Route: 065
     Dates: start: 20150707

REACTIONS (1)
  - Vocal cord cyst [Recovered/Resolved]

NARRATIVE: CASE EVENT DATE: 20150627
